FAERS Safety Report 5939116-7 (Version None)
Quarter: 2008Q4

REPORT INFORMATION
  Report Type: 
  Country: None (occurrence: None)
  Receive Date: 20081103
  Receipt Date: 20081028
  Transmission Date: 20090506
  Serious: Yes (Other)
  Sender: FDA-Public Use
  Company Number: B0544484A

PATIENT
  Age: 8 Year
  Sex: Female

DRUGS (1)
  1. AUGMENTIN '125' [Suspect]
     Indication: URINARY TRACT INFECTION
     Dosage: 500MG THREE TIMES PER DAY
     Route: 048
     Dates: start: 20081025, end: 20081027

REACTIONS (5)
  - ABDOMINAL PAIN [None]
  - HEPATITIS ACUTE [None]
  - JAUNDICE [None]
  - PYREXIA [None]
  - ULTRASOUND ABDOMEN ABNORMAL [None]
